FAERS Safety Report 18214822 (Version 1)
Quarter: 2020Q3

REPORT INFORMATION
  Report Type: Spontaneous
  Country: US (occurrence: US)
  Receive Date: 20200831
  Receipt Date: 20200831
  Transmission Date: 20201103
  Serious: No
  Sender: FDA-Public Use
  Company Number: US-SA-2020SA226260

PATIENT

DRUGS (1)
  1. DUPIXENT [Suspect]
     Active Substance: DUPILUMAB
     Indication: NEURODERMATITIS
     Dosage: UNK, QOW
     Route: 058
     Dates: start: 20200103

REACTIONS (1)
  - Neurodermatitis [Recovering/Resolving]

NARRATIVE: CASE EVENT DATE: 202007
